FAERS Safety Report 6294971-9 (Version None)
Quarter: 2009Q3

REPORT INFORMATION
  Report Type: 
  Country: None (occurrence: None)
  Receive Date: 20090803
  Receipt Date: 20090729
  Transmission Date: 20100115
  Serious: Yes (Hospitalization)
  Sender: FDA-Public Use
  Company Number: BR-BAYER-200918157LA

PATIENT
  Age: 38 Year
  Sex: Male

DRUGS (2)
  1. BETAFERON [Suspect]
     Indication: PRIMARY PROGRESSIVE MULTIPLE SCLEROSIS
     Dosage: BETAJECT
     Route: 058
     Dates: start: 20090501, end: 20090601
  2. BETAFERON [Suspect]
     Dosage: BETAJECT
     Route: 058
     Dates: start: 20090101

REACTIONS (8)
  - BONE PAIN [None]
  - DYSGRAPHIA [None]
  - GAIT DISTURBANCE [None]
  - HEMIPLEGIA [None]
  - INTERVERTEBRAL DISC PROTRUSION [None]
  - MOBILITY DECREASED [None]
  - NEURITIS [None]
  - SCIATICA [None]
